FAERS Safety Report 6733474-1 (Version None)
Quarter: 2010Q2

REPORT INFORMATION
  Report Type: 
  Country: None (occurrence: None)
  Receive Date: 20100520
  Receipt Date: 20100507
  Transmission Date: 20101027
  Serious: Yes (Other)
  Sender: FDA-Public Use
  Company Number: PHHY2010US31237

PATIENT
  Sex: Female

DRUGS (20)
  1. RECLAST [Suspect]
     Dosage: UNK
     Route: 042
     Dates: start: 20070101, end: 20100430
  2. RECLAST [Suspect]
     Dosage: UNK
     Dates: start: 20100430
  3. BONIVA [Suspect]
  4. FOSAMAX [Suspect]
  5. TRICOR [Concomitant]
     Dosage: 145 MG, QD
  6. AMLODIPINE [Concomitant]
     Dosage: 10 MG
  7. CRESTOR [Concomitant]
     Dosage: 5 MG
  8. LISINOPRIL [Concomitant]
     Dosage: 10 MG, QD
  9. METOPROLOL TARTRATE [Concomitant]
  10. HYDROCHLOROTHIAZIDE [Concomitant]
  11. FLOVENT [Concomitant]
     Dosage: 110 UG, BID
  12. VENTOLIN [Concomitant]
     Dosage: 1-2 PUFFS THRICE DAILY
  13. ACETAMINOPHEN [Concomitant]
     Dosage: 500 MG
  14. ACETAMINOPHEN [Concomitant]
     Dosage: 500 MG, PRN
  15. PROPOXYPHENE NAPSYLATE [Concomitant]
     Dosage: 100-650MG EVERY 8 HOURS
  16. LIDODERM [Concomitant]
     Dosage: 700 MG, PRN
  17. VOLTAREN                           /00372303/ [Concomitant]
     Indication: NEUROPATHY PERIPHERAL
  18. ESTRACYT                                /SCH/ [Concomitant]
     Dosage: 1000 ONCE DAILY1000 ONCE DAILY
  19. CALCIUM [Concomitant]
     Dosage: 400 IU, TID
  20. ECEDRIN WITH ZINC [Concomitant]

REACTIONS (13)
  - ASTHENIA [None]
  - BACK PAIN [None]
  - BONE DISORDER [None]
  - BONE PAIN [None]
  - DYSKINESIA [None]
  - DYSPNOEA [None]
  - DYSSTASIA [None]
  - FATIGUE [None]
  - MUSCULOSKELETAL STIFFNESS [None]
  - OSTEITIS DEFORMANS [None]
  - PAIN [None]
  - SOMNOLENCE [None]
  - VEIN DISORDER [None]
